FAERS Safety Report 21741688 (Version 2)
Quarter: 2022Q4

REPORT INFORMATION
  Report Type: Report from Study
  Country: LB (occurrence: LB)
  Receive Date: 20221216
  Receipt Date: 20221230
  Transmission Date: 20230112
  Serious: Yes (Other)
  Sender: FDA-Public Use
  Company Number: LB-002147023-NVSC2022LB288704

PATIENT
  Age: 38 Year
  Sex: Female
  Weight: 81 kg

DRUGS (5)
  1. HYRIMOZ [Suspect]
     Active Substance: ADALIMUMAB-ADAZ
     Indication: Ankylosing spondylitis
     Dosage: 1 DOSAGE FORM, QW
     Route: 058
     Dates: start: 202109
  2. HYRIMOZ [Suspect]
     Active Substance: ADALIMUMAB-ADAZ
     Dosage: 1 DOSAGE FORM, EVERY 10 DAYS
     Route: 058
     Dates: start: 202210
  3. HYRIMOZ [Suspect]
     Active Substance: ADALIMUMAB-ADAZ
     Dosage: 1 DOSAGE FORM, EVERY 10 DAYS
     Route: 058
     Dates: start: 20221216
  4. METHOTREXATE SODIUM [Concomitant]
     Active Substance: METHOTREXATE SODIUM
     Indication: Product used for unknown indication
     Dosage: UNK
     Route: 065
  5. ARCOXIA [Concomitant]
     Active Substance: ETORICOXIB
     Indication: Product used for unknown indication
     Dosage: UNK
     Route: 065

REACTIONS (5)
  - Immunodeficiency [Recovering/Resolving]
  - COVID-19 [Recovered/Resolved]
  - Arthralgia [Unknown]
  - Back pain [Unknown]
  - Intentional product misuse [Recovering/Resolving]

NARRATIVE: CASE EVENT DATE: 20220701
